FAERS Safety Report 5301340-4 (Version None)
Quarter: 2007Q2

REPORT INFORMATION
  Report Type: 
  Country: None (occurrence: None)
  Receive Date: 20070418
  Receipt Date: 20070406
  Transmission Date: 20071010
  Serious: Yes (Hospitalization, Other)
  Sender: FDA-Public Use
  Company Number: US-PFIZER INC-2007028646

PATIENT
  Sex: Female
  Weight: 52.2 kg

DRUGS (7)
  1. CHANTIX [Suspect]
     Indication: EX-SMOKER
  2. ALL OTHER THERAPEUTIC PRODUCTS [Suspect]
     Indication: BLADDER CANCER
  3. KLONOPIN [Concomitant]
  4. ACIPHEX [Concomitant]
  5. PROVIGIL [Concomitant]
  6. ANTIBIOTICS [Concomitant]
     Dates: start: 20070101, end: 20070301
  7. ALL OTHER THERAPEUTIC PRODUCTS [Concomitant]
     Dates: start: 20070101, end: 20070301

REACTIONS (4)
  - BLADDER CANCER [None]
  - CHILLS [None]
  - NAUSEA [None]
  - PYREXIA [None]
